FAERS Safety Report 9697365 (Version 1)
Quarter: 2013Q4

REPORT INFORMATION
  Report Type: Spontaneous
  Country: US (occurrence: None)
  Receive Date: 20131119
  Receipt Date: 20131119
  Transmission Date: 20140711
  Serious: No
  Sender: FDA-Public Use
  Company Number: None

PATIENT
  Sex: 0

DRUGS (1)
  1. ALEMTUZUMAB [Suspect]

REACTIONS (7)
  - Syncope [None]
  - Asthenia [None]
  - Mental status changes [None]
  - Blood pressure immeasurable [None]
  - Pulse absent [None]
  - Atrial fibrillation [None]
  - Platelet count decreased [None]
